FAERS Safety Report 14785059 (Version 1)
Quarter: 2018Q2

REPORT INFORMATION
  Report Type: Report from Study
  Country: ES (occurrence: ES)
  Receive Date: 20180420
  Receipt Date: 20180420
  Transmission Date: 20180711
  Serious: Yes (Other)
  Sender: FDA-Public Use
  Company Number: ES-UCBSA-2018016911

PATIENT
  Age: 42 Year
  Sex: Female

DRUGS (1)
  1. LACOSAMIDE. [Suspect]
     Active Substance: LACOSAMIDE
     Indication: EPILEPSY
     Dosage: UNK
     Dates: start: 2016

REACTIONS (3)
  - Epilepsy [Unknown]
  - Appetite disorder [Unknown]
  - Hypersomnia [Unknown]

NARRATIVE: CASE EVENT DATE: 2016
